FAERS Safety Report 7715949-1 (Version None)
Quarter: 2011Q3

REPORT INFORMATION
  Report Type: 
  Country: None (occurrence: None)
  Receive Date: 20110829
  Receipt Date: 20110817
  Transmission Date: 20111222
  Serious: Yes (Other)
  Sender: FDA-Public Use
  Company Number: CA-ELI_LILLY_AND_COMPANY-CA201108005304

PATIENT
  Sex: Male

DRUGS (10)
  1. ZYPREXA [Suspect]
     Dosage: 10 MG, EACH EVENING
     Dates: start: 20020313
  2. TOPAMAX [Concomitant]
  3. BENZTROPINE MESYLATE [Concomitant]
  4. LITHIUM CARBONATE [Concomitant]
  5. RISPERIDONE [Concomitant]
  6. TRAZODONE HYDROCHLORIDE [Concomitant]
  7. CLONAZEPAM [Concomitant]
  8. CARBAMAZEPINE [Concomitant]
  9. ZYPREXA [Suspect]
     Indication: BIPOLAR DISORDER
     Dosage: 2.5 MG, EACH EVENING
     Dates: start: 20020313
  10. SEROQUEL [Concomitant]

REACTIONS (5)
  - WEIGHT INCREASED [None]
  - ATRIOVENTRICULAR BLOCK [None]
  - DIABETES MELLITUS [None]
  - TACHYCARDIA [None]
  - HYPERTENSION [None]
